FAERS Safety Report 19815673 (Version 1)
Quarter: 2021Q3

REPORT INFORMATION
  Report Type: Spontaneous
  Country: BR (occurrence: BR)
  Receive Date: 20210910
  Receipt Date: 20210910
  Transmission Date: 20211014
  Serious: Yes (Hospitalization)
  Sender: FDA-Public Use
  Company Number: BR-BAYER-2021-204993

PATIENT
  Age: 0 Day
  Sex: Male
  Weight: 1.8 kg

DRUGS (1)
  1. MIRENA [Suspect]
     Active Substance: LEVONORGESTREL
     Dosage: 20 ?G, CONT
     Route: 064
     Dates: start: 20191001

REACTIONS (4)
  - Maternal condition affecting foetus [None]
  - Premature baby [None]
  - Foetal exposure during pregnancy [None]
  - Low birth weight baby [None]

NARRATIVE: CASE EVENT DATE: 20210323
